FAERS Safety Report 9261410 (Version 1)
Quarter: 2013Q2

REPORT INFORMATION
  Report Type: Spontaneous
  Country: US (occurrence: US)
  Receive Date: 20130429
  Receipt Date: 20130429
  Transmission Date: 20140414
  Serious: Yes (Other)
  Sender: FDA-Public Use
  Company Number: US-BAYER-2013-052069

PATIENT
  Age: 42 Year
  Sex: Female

DRUGS (12)
  1. YAZ [Suspect]
  2. GIANVI [Suspect]
  3. OXYCODONE W/PARACETAMOL [Concomitant]
     Dosage: 30 DISPENSED
  4. HYDROCODONE W/ACETAMINOPHEN [Concomitant]
     Dosage: 30 DISPENSED
  5. PREDNISONE [Concomitant]
     Dosage: 10 MG, UNK, 8 DISPENSED
  6. SINGULAIR [Concomitant]
     Dosage: 10 MG, UNK
  7. LEXAPRO [Concomitant]
     Dosage: 10 MG, UNK
  8. PROVENTIL [Concomitant]
     Dosage: 90 ?G, UNK
  9. IBUPROFEN [Concomitant]
     Dosage: 600 MG, UNK, 12 DISPENSED
  10. AMOXICILLIN [Concomitant]
     Dosage: 500 MG, UNK, 12 DISPENSED
  11. QVAR [Concomitant]
     Dosage: 80 ?G, UNK
  12. CLINDAMYCIN [Concomitant]
     Dosage: 300 MG, 20 DISPENSED

REACTIONS (2)
  - Deep vein thrombosis [Recovering/Resolving]
  - Thrombophlebitis [None]
